FAERS Safety Report 18735217 (Version 1)
Quarter: 2021Q1

REPORT INFORMATION
  Report Type: Spontaneous
  Country: GR (occurrence: GR)
  Receive Date: 20210113
  Receipt Date: 20210113
  Transmission Date: 20210419
  Serious: Yes (Hospitalization)
  Sender: FDA-Public Use
  Company Number: NVSC2021GR002944

PATIENT
  Age: 79 Year
  Sex: Male

DRUGS (4)
  1. TASIGNA [Suspect]
     Active Substance: NILOTINIB
     Indication: LEUKAEMIA
     Dosage: 300 MG, QD (150 MILLIGRAM, BID)
     Route: 048
     Dates: start: 2012, end: 20201215
  2. LOPRESS [LOSARTAN POTASSIUM] [Suspect]
     Active Substance: LOSARTAN POTASSIUM
     Indication: ATRIAL FIBRILLATION
     Dosage: UNK, BID
     Route: 048
  3. PROPAFENONE HCL [Suspect]
     Active Substance: PROPAFENONE HYDROCHLORIDE
     Indication: ATRIAL FIBRILLATION
     Dosage: 425 MG
     Route: 048
  4. PROPAFENONE HCL [Suspect]
     Active Substance: PROPAFENONE HYDROCHLORIDE
     Dosage: 150 MG, Q6H
     Route: 048
     Dates: start: 202012

REACTIONS (2)
  - Blindness [Not Recovered/Not Resolved]
  - Drug ineffective [Unknown]

NARRATIVE: CASE EVENT DATE: 20201215
